FAERS Safety Report 7461418-6 (Version None)
Quarter: 2011Q2

REPORT INFORMATION
  Report Type: 
  Country: None (occurrence: None)
  Receive Date: 20110428
  Receipt Date: 20101220
  Transmission Date: 20111010
  Serious: Yes (Hospitalization)
  Sender: FDA-Public Use
  Company Number: 2010GW000952

PATIENT
  Age: 79 Year
  Sex: Male
  Weight: 83.0083 kg

DRUGS (10)
  1. AMOXICILLIN [Concomitant]
  2. ASPIRIN [Concomitant]
  3. M.V.I. [Concomitant]
  4. ZYCLARA [Suspect]
     Indication: ACTINIC KERATOSIS
     Dosage: 3.75 PCT;QD;TOP
     Route: 061
     Dates: start: 20100820
  5. PREDNISONE [Concomitant]
  6. STALEVO 100 [Concomitant]
  7. FLOMAX [Concomitant]
  8. ALLOPURINOL [Concomitant]
  9. CELEBREX [Concomitant]
  10. DIOVAN [Concomitant]

REACTIONS (15)
  - PANCYTOPENIA [None]
  - FATIGUE [None]
  - SYNCOPE [None]
  - LYMPHADENOPATHY [None]
  - INCORRECT DRUG ADMINISTRATION DURATION [None]
  - DIZZINESS POSTURAL [None]
  - RASH PAPULAR [None]
  - APPLICATION SITE SCAB [None]
  - APPLICATION SITE RASH [None]
  - GAIT DISTURBANCE [None]
  - LACUNAR INFARCTION [None]
  - ASTHENIA [None]
  - APHASIA [None]
  - SPLENOMEGALY [None]
  - BACK PAIN [None]
